FAERS Safety Report 18392406 (Version 1)
Quarter: 2020Q4

REPORT INFORMATION
  Report Type: Spontaneous
  Country: US (occurrence: US)
  Receive Date: 20201016
  Receipt Date: 20201016
  Transmission Date: 20210114
  Serious: Yes (Hospitalization)
  Sender: FDA-Public Use
  Company Number: None

PATIENT
  Age: 20 Year
  Sex: Female

DRUGS (7)
  1. METHADONE [Concomitant]
     Active Substance: METHADONE HYDROCHLORIDE
  2. FOLIC ACID 1MG [Concomitant]
     Active Substance: FOLIC ACID
  3. HYDROXYUREA 500MG [Concomitant]
     Active Substance: HYDROXYUREA
  4. OXYCODONE 5MG [Concomitant]
     Active Substance: OXYCODONE
  5. ADAKVEO [Suspect]
     Active Substance: CRIZANLIZUMAB-TMCA
     Indication: SICKLE CELL DISEASE
     Dosage: ?          OTHER FREQUENCY:EVERY 4 WEEKS;?
     Route: 042
     Dates: start: 20200317
  6. NAPROXEN 500MG [Concomitant]
     Active Substance: NAPROXEN
  7. DULOXETINE 60MG [Concomitant]
     Active Substance: DULOXETINE

REACTIONS (3)
  - Therapy interrupted [None]
  - Hepatic enzyme increased [None]
  - General physical health deterioration [None]

NARRATIVE: CASE EVENT DATE: 20200520
